FAERS Safety Report 9173385 (Version 1)
Quarter: 2013Q1

REPORT INFORMATION
  Report Type: Spontaneous
  Country: US (occurrence: None)
  Receive Date: 20130318
  Receipt Date: 20130318
  Transmission Date: 20140127
  Serious: Yes (Other)
  Sender: FDA-Public Use
  Company Number: None

PATIENT
  Sex: Female

DRUGS (9)
  1. FORTEO 600 MCG LILLY [Suspect]
     Indication: OSTEOPOROSIS
     Dosage: 20 MCG DAILY SQ
     Route: 058
     Dates: start: 20130104, end: 20130315
  2. CRESTOR [Concomitant]
  3. CYMBALTA [Concomitant]
  4. VITAMIN D [Concomitant]
  5. VIVELLE [Concomitant]
  6. PROGESTERONE [Concomitant]
  7. ESTROGEN [Concomitant]
  8. TESTOSTERONE [Concomitant]
  9. PERCOCET [Concomitant]

REACTIONS (2)
  - Urticaria [None]
  - Vision blurred [None]
